FAERS Safety Report 7225838-7 (Version None)
Quarter: 2011Q1

REPORT INFORMATION
  Report Type: 
  Country: None (occurrence: None)
  Receive Date: 20110107
  Receipt Date: 20110107
  Transmission Date: 20110831
  Serious: Yes (Hospitalization)
  Sender: FDA-Public Use
  Company Number: None

PATIENT
  Sex: Male
  Weight: 79.3795 kg

DRUGS (1)
  1. ROLAIDS [Suspect]

REACTIONS (4)
  - DIARRHOEA [None]
  - DEHYDRATION [None]
  - MALAISE [None]
  - VOMITING [None]
